FAERS Safety Report 11311760 (Version 2)
Quarter: 2015Q3

REPORT INFORMATION
  Report Type: Spontaneous
  Country: US (occurrence: None)
  Receive Date: 20150723
  Receipt Date: 20150820
  Transmission Date: 20151125
  Serious: Yes (Death, Life-Threatening, Hospitalization)
  Sender: FDA-Public Use
  Company Number: 1713747-2015-999221

PATIENT
  Age: 41 Year
  Sex: Female
  Weight: 62.5 kg

DRUGS (14)
  1. 0.9% SODIUM CHLORIDE INJECTION, USP [Suspect]
     Active Substance: SODIUM CHLORIDE
     Indication: CHRONIC KIDNEY DISEASE
     Dosage: HEMODIALYSIS
     Dates: start: 20080426
  2. FMC BLOODLINES [Concomitant]
     Active Substance: DEVICE
  3. 2008K [Concomitant]
  4. DIALYZERS [Concomitant]
  5. LISINOPRIL. [Concomitant]
     Active Substance: LISINOPRIL
  6. GRANUFLO [Concomitant]
     Active Substance: ACETIC ACID\SODIUM ACETATE
  7. CARVEDIDOL [Concomitant]
  8. NATURALYTE [Concomitant]
     Active Substance: ACETIC ACID\SODIUM ACETATE
  9. REGLAN [Concomitant]
     Active Substance: METOCLOPRAMIDE HYDROCHLORIDE
  10. COUMADIN [Concomitant]
     Active Substance: WARFARIN SODIUM
  11. SALINE [Concomitant]
     Active Substance: SODIUM CHLORIDE
  12. CARAFATE [Concomitant]
     Active Substance: SUCRALFATE
  13. RENALPLEX [Concomitant]
  14. VICODIN [Concomitant]
     Active Substance: ACETAMINOPHEN\HYDROCODONE BITARTRATE

REACTIONS (8)
  - Cardiac arrest [None]
  - Hypoxia [None]
  - Ventricular fibrillation [None]
  - Pulseless electrical activity [None]
  - Device malfunction [None]
  - Disease complication [None]
  - Nephropathy [None]
  - Respiratory arrest [None]

NARRATIVE: CASE EVENT DATE: 20080426
